FAERS Safety Report 5747092-5 (Version None)
Quarter: 2008Q2

REPORT INFORMATION
  Report Type: 
  Country: None (occurrence: None)
  Receive Date: 20080522
  Receipt Date: 20080521
  Transmission Date: 20081010
  Serious: Yes (Death)
  Sender: FDA-Public Use
  Company Number: AU-BOEHRINGER INGELHEIM GMBH, GERMANY-2008-BP-06344AU

PATIENT
  Sex: Male
  Weight: 80 kg

DRUGS (7)
  1. SPIRIVA [Suspect]
     Route: 055
  2. RAMACE [Concomitant]
     Route: 048
  3. LASIX (FRUSEMIDE) [Concomitant]
     Dosage: 40 TO 80
  4. SERETIDE ACCUHALER (SALMETEROL) [Concomitant]
     Route: 055
  5. LIPITOR [Concomitant]
  6. PROGOUT [Concomitant]
  7. ACTONEL WITH CALCIUM (COPACKAGED) [Suspect]

REACTIONS (2)
  - LUNG NEOPLASM MALIGNANT [None]
  - MULTI-ORGAN FAILURE [None]
